FAERS Safety Report 11856964 (Version 1)
Quarter: 2015Q4

REPORT INFORMATION
  Report Type: Spontaneous
  Country: VN (occurrence: VN)
  Receive Date: 20151221
  Receipt Date: 20151221
  Transmission Date: 20160305
  Serious: Yes (Death)
  Sender: FDA-Public Use
  Company Number: VN-009507513-1512VNM010027

PATIENT
  Sex: Female

DRUGS (1)
  1. VYTORIN [Suspect]
     Active Substance: EZETIMIBE\SIMVASTATIN
     Dosage: STRENGTH 10/10,1 TABLET, ONCE A DAY
     Route: 048
     Dates: start: 20130813

REACTIONS (2)
  - Hypertension [Fatal]
  - Adverse event [Fatal]
